FAERS Safety Report 8306635-8 (Version None)
Quarter: 2012Q2

REPORT INFORMATION
  Report Type: 
  Country: None (occurrence: None)
  Receive Date: 20120424
  Receipt Date: 20120416
  Transmission Date: 20120825
  Serious: Yes (Other)
  Sender: FDA-Public Use
  Company Number: US-BAYER-2011-123876

PATIENT
  Age: 22 Year
  Sex: Female
  Weight: 108.84 kg

DRUGS (4)
  1. AUGMENTIN '125' [Concomitant]
  2. PHENERGAN HCL [Concomitant]
  3. YASMIN [Suspect]
     Indication: CONTRACEPTION
     Dosage: UNK
     Route: 048
     Dates: start: 20060201, end: 20060401
  4. MULTI-VITAMINS [Concomitant]
     Dosage: UNK
     Dates: start: 20061001

REACTIONS (8)
  - EMOTIONAL DISTRESS [None]
  - CHOLELITHIASIS [None]
  - PAIN [None]
  - CHOLECYSTITIS CHRONIC [None]
  - GENERAL PHYSICAL HEALTH DETERIORATION [None]
  - INJURY [None]
  - BILIARY COLIC [None]
  - ANXIETY [None]
